FAERS Safety Report 10509618 (Version 3)
Quarter: 2015Q1

REPORT INFORMATION
  Report Type: Report from Study
  Country: MX (occurrence: MX)
  Receive Date: 20141010
  Receipt Date: 20150313
  Transmission Date: 20150720
  Serious: Yes (Other)
  Sender: FDA-Public Use
  Company Number: MX-ORION CORPORATION ORION PHARMA-ENTC2013-0236

PATIENT
  Age: 83 Year
  Sex: Female

DRUGS (13)
  1. STALEVO [Suspect]
     Active Substance: CARBIDOPA\ENTACAPONE\LEVODOPA
     Dosage: STRENGTH: 150/37.5/200 MG
     Route: 048
     Dates: start: 201302
  2. NOVOBEN [Concomitant]
     Route: 065
  3. AMARYL [Concomitant]
     Active Substance: GLIMEPIRIDE
     Route: 065
  4. KINESTREL [Concomitant]
     Indication: PARKINSON^S DISEASE
     Route: 065
     Dates: start: 201302
  5. AKATINOL [Concomitant]
     Route: 065
  6. VICTAN [Concomitant]
     Active Substance: ETHYL LOFLAZEPATE
     Route: 065
  7. NUBRENZA [Concomitant]
     Active Substance: ROTIGOTINE
     Indication: PARKINSON^S DISEASE
     Route: 065
     Dates: start: 2012
  8. STALEVO [Suspect]
     Active Substance: CARBIDOPA\ENTACAPONE\LEVODOPA
     Indication: PARKINSON^S DISEASE
     Dosage: STRENGTH: 100/25/200 MG
     Route: 048
  9. STALEVO [Suspect]
     Active Substance: CARBIDOPA\ENTACAPONE\LEVODOPA
     Dosage: STRENGTH: 150/37.5/200 MG
     Route: 048
  10. AMAREL [Concomitant]
     Active Substance: GLIMEPIRIDE
     Route: 065
  11. AKINETON [Concomitant]
     Active Substance: BIPERIDEN HYDROCHLORIDE
     Route: 065
  12. QUINESTRAL [Concomitant]
     Route: 065
  13. EUTEBROL [Concomitant]
     Route: 065

REACTIONS (14)
  - Musculoskeletal stiffness [Not Recovered/Not Resolved]
  - Fear of falling [Not Recovered/Not Resolved]
  - Fear [Not Recovered/Not Resolved]
  - Cardiac disorder [Unknown]
  - Dysstasia [Recovered/Resolved]
  - Memory impairment [Unknown]
  - Malaise [Recovered/Resolved]
  - Urine output increased [Recovered/Resolved]
  - Tremor [Recovered/Resolved]
  - Dysphonia [Not Recovered/Not Resolved]
  - Hypertension [Not Recovered/Not Resolved]
  - Fall [Unknown]
  - Nervousness [Not Recovered/Not Resolved]
  - Blood glucose increased [Recovered/Resolved]

NARRATIVE: CASE EVENT DATE: 201302
